FAERS Safety Report 6453383-5 (Version None)
Quarter: 2009Q4

REPORT INFORMATION
  Report Type: 
  Country: None (occurrence: None)
  Receive Date: 20091124
  Receipt Date: 20091119
  Transmission Date: 20100525
  Serious: Yes (Hospitalization)
  Sender: FDA-Public Use
  Company Number: BR-ABBOTT-08P-020-0476043-00

PATIENT
  Sex: Female
  Weight: 49 kg

DRUGS (9)
  1. HUMIRA [Suspect]
     Indication: RHEUMATOID ARTHRITIS
     Dosage: 1 APPLICATION EVERY 14 DAYS
     Route: 058
     Dates: start: 20080731
  2. HUMIRA [Suspect]
     Route: 058
     Dates: start: 20080201
  3. ENOXAPARIN SODIUM [Concomitant]
     Indication: THROMBOSIS
  4. MELOXICAM [Concomitant]
     Indication: PAIN
     Route: 048
     Dates: start: 20040101
  5. ATENOLOL [Concomitant]
     Indication: BLOOD PRESSURE
     Route: 048
     Dates: start: 20060601
  6. HYDROCHLOROTHIAZIDE [Concomitant]
     Indication: BLOOD PRESSURE
     Route: 048
     Dates: start: 20060601
  7. PREDNISONE [Concomitant]
     Indication: PAIN
     Route: 048
     Dates: start: 19840101
  8. OMEPRAZOLE [Concomitant]
     Indication: GASTRITIS
     Route: 048
     Dates: start: 19990101
  9. CHLOROQUINE PHOSPHATE [Concomitant]
     Indication: RHEUMATOID ARTHRITIS
     Route: 048
     Dates: start: 19990101

REACTIONS (6)
  - DEVICE FAILURE [None]
  - FEMUR FRACTURE [None]
  - HEADACHE [None]
  - PAIN [None]
  - RED BLOOD CELL SEDIMENTATION RATE ABNORMAL [None]
  - WEIGHT INCREASED [None]
